FAERS Safety Report 15755174 (Version 2)
Quarter: 2025Q4

REPORT INFORMATION
  Report Type: Spontaneous
  Country: EU (occurrence: EU)
  Receive Date: 20181224
  Receipt Date: 20251206
  Transmission Date: 20260117
  Serious: Yes (Other)
  Sender: AUROBINDO
  Company Number: EU-AUROBINDO-AUR-APL-2013-09233

PATIENT
  Age: 71 Year
  Sex: Male

DRUGS (3)
  1. LEVOFLOXACIN [Suspect]
     Active Substance: LEVOFLOXACIN
     Indication: Pyrexia
     Dosage: UNK 10MONTHS
  2. RIFAMPIN [Concomitant]
     Active Substance: RIFAMPIN
     Indication: Product used for unknown indication
     Dosage: UNK UNK,UNK,
     Route: 065
  3. RIFAMPIN [Concomitant]
     Active Substance: RIFAMPIN
     Dosage: UNK
     Route: 065

REACTIONS (3)
  - Pruritus [Unknown]
  - Skin hyperpigmentation [Recovering/Resolving]
  - Pigmentation disorder [Recovering/Resolving]
